FAERS Safety Report 6371571-3 (Version None)
Quarter: 2009Q3

REPORT INFORMATION
  Report Type: 
  Country: None (occurrence: None)
  Receive Date: 20090923
  Receipt Date: 20071002
  Transmission Date: 20100115
  Serious: No
  Sender: FDA-Public Use
  Company Number: US-ASTRAZENECA-2007UW16424

PATIENT
  Age: 19942 Day
  Sex: Male
  Weight: 149.2 kg

DRUGS (19)
  1. SEROQUEL [Suspect]
     Indication: BIPOLAR DISORDER
     Route: 048
  2. SEROQUEL [Suspect]
     Dosage: 25 - 100 MG
     Route: 048
     Dates: start: 19980331
  3. PAXIL [Concomitant]
     Route: 048
  4. TOPAMAX [Concomitant]
  5. ZOMIG [Concomitant]
  6. IMITREX [Concomitant]
  7. DULCOLAX [Concomitant]
  8. FLORONE [Concomitant]
  9. LACTULOSE [Concomitant]
  10. BIAXIN [Concomitant]
  11. VIOXX [Concomitant]
  12. VALIUM [Concomitant]
  13. SINGULAIR [Concomitant]
  14. NEURONTIN [Concomitant]
  15. LUVOX [Concomitant]
  16. CELEBREX [Concomitant]
  17. LITHIUM [Concomitant]
  18. RHINOCORT [Concomitant]
  19. MONOPRIL [Concomitant]

REACTIONS (9)
  - ANXIETY [None]
  - ARTHRALGIA [None]
  - CONSTIPATION [None]
  - COUGH [None]
  - DIABETES MELLITUS [None]
  - DIARRHOEA [None]
  - MUSCULOSKELETAL PAIN [None]
  - PYREXIA [None]
  - SINUSITIS [None]
